FAERS Safety Report 6192506-2 (Version None)
Quarter: 2009Q2

REPORT INFORMATION
  Report Type: 
  Country: None (occurrence: None)
  Receive Date: 20090518
  Receipt Date: 20090508
  Transmission Date: 20091009
  Serious: Yes (Hospitalization)
  Sender: FDA-Public Use
  Company Number: PHHY2009CA17806

PATIENT
  Sex: Male

DRUGS (1)
  1. EXJADE [Suspect]
     Indication: IRON OVERLOAD
     Dosage: 2000 MG, UNK
     Route: 048
     Dates: start: 20090301

REACTIONS (2)
  - SPLEEN OPERATION [None]
  - WEIGHT DECREASED [None]
